FAERS Safety Report 26116471 (Version 1)
Quarter: 2025Q4

REPORT INFORMATION
  Report Type: Spontaneous
  Country: US (occurrence: None)
  Receive Date: 20251202
  Receipt Date: 20251202
  Transmission Date: 20260117
  Serious: Yes (Death)
  Sender: FDA-CTU
  Company Number: None

PATIENT
  Age: 64 Year
  Sex: Female

DRUGS (1)
  1. SIMPONI [Suspect]
     Active Substance: GOLIMUMAB
     Dosage: 175 UNITS/150 MG EVERY 12 WEEKS /EVERY 28 DAYS SUBCUTANEOUS ?
     Route: 058

REACTIONS (1)
  - Death [None]
